FAERS Safety Report 10371998 (Version 1)
Quarter: 2014Q3

REPORT INFORMATION
  Report Type: Spontaneous
  Country: FR (occurrence: FR)
  Receive Date: 20140808
  Receipt Date: 20140808
  Transmission Date: 20150326
  Serious: Yes (Hospitalization)
  Sender: FDA-Public Use
  Company Number: FR-SHIRE-FR201404589

PATIENT
  Age: 87 Year
  Sex: Male

DRUGS (1)
  1. XAGRID [Suspect]
     Active Substance: ANAGRELIDE HYDROCHLORIDE
     Indication: ESSENTIAL THROMBOCYTHAEMIA
     Dosage: 1 MG, 2X/DAY:BID
     Route: 048
     Dates: start: 20131010, end: 20140626

REACTIONS (4)
  - Myelofibrosis [Unknown]
  - Cardiac failure [Unknown]
  - Condition aggravated [Unknown]
  - Pulmonary hypertension [Unknown]

NARRATIVE: CASE EVENT DATE: 201402
